FAERS Safety Report 12827564 (Version 1)
Quarter: 2016Q4

REPORT INFORMATION
  Report Type: Spontaneous
  Country: JP (occurrence: JP)
  Receive Date: 20161007
  Receipt Date: 20161007
  Transmission Date: 20170207
  Serious: Yes (Other)
  Sender: FDA-Public Use
  Company Number: JP-ELI_LILLY_AND_COMPANY-JP201610000042

PATIENT
  Age: 75 Year
  Sex: Male

DRUGS (2)
  1. GEMZAR [Suspect]
     Active Substance: GEMCITABINE HYDROCHLORIDE
     Indication: GALLBLADDER CANCER STAGE III
     Route: 042
  2. CISPATIN [Concomitant]
     Active Substance: CISPLATIN
     Indication: GALLBLADDER CANCER STAGE III
     Route: 042

REACTIONS (5)
  - Bone marrow failure [Unknown]
  - Autoimmune haemolytic anaemia [Unknown]
  - Pneumonia cryptococcal [Unknown]
  - Cholangitis [Unknown]
  - Candida infection [Unknown]
